FAERS Safety Report 5650401-9 (Version None)
Quarter: 2008Q1

REPORT INFORMATION
  Report Type: 
  Country: None (occurrence: None)
  Receive Date: 20080304
  Receipt Date: 20080304
  Transmission Date: 20080703
  Serious: Yes (Other)
  Sender: FDA-Public Use
  Company Number: None

PATIENT
  Age: 28 Year
  Sex: Female
  Weight: 62.5964 kg

DRUGS (2)
  1. CYMBALTA [Suspect]
     Indication: FIBROMYALGIA
     Dosage: 90 MG QD PO
     Route: 048
     Dates: start: 20050801, end: 20080228
  2. CYMBALTA [Suspect]
     Indication: OFF LABEL USE
     Dosage: 90 MG QD PO
     Route: 048
     Dates: start: 20050801, end: 20080228

REACTIONS (12)
  - ANGER [None]
  - DIZZINESS [None]
  - HYPOMANIA [None]
  - OFF LABEL USE [None]
  - PALPITATIONS [None]
  - PARAESTHESIA [None]
  - PARANOIA [None]
  - THINKING ABNORMAL [None]
  - VASCULAR SKIN DISORDER [None]
  - VISION BLURRED [None]
  - VOMITING [None]
  - WITHDRAWAL SYNDROME [None]
